FAERS Safety Report 5672505-7 (Version None)
Quarter: 2008Q2

REPORT INFORMATION
  Report Type: 
  Country: None (occurrence: None)
  Receive Date: 20080219
  Receipt Date: 20071022
  Transmission Date: 20081010
  Serious: No
  Sender: FDA-Public Use
  Company Number: TPA2007A02159

PATIENT
  Age: 81 Year
  Sex: Male
  Weight: 99.7913 kg

DRUGS (3)
  1. ROZEREM [Suspect]
     Indication: INITIAL INSOMNIA
     Dosage: 8 MG, QHS, PER ORAL ; 8 MG, QHS, PER ORAL
     Route: 048
     Dates: start: 20070801, end: 20070801
  2. ROZEREM [Suspect]
     Indication: INITIAL INSOMNIA
     Dosage: 8 MG, QHS, PER ORAL ; 8 MG, QHS, PER ORAL
     Route: 048
     Dates: start: 20071001, end: 20071021
  3. VALIUM [Concomitant]

REACTIONS (4)
  - DRUG INEFFECTIVE [None]
  - INITIAL INSOMNIA [None]
  - MIDDLE INSOMNIA [None]
  - PARADOXICAL DRUG REACTION [None]
